FAERS Safety Report 4344272-0 (Version None)
Quarter: 2004Q2

REPORT INFORMATION
  Report Type: 
  Country: None (occurrence: None)
  Receive Date: 20040420
  Receipt Date: 20040408
  Transmission Date: 20050107
  Serious: Yes (Life-Threatening)
  Sender: FDA-Public Use
  Company Number: GB-JNJFOC-20040401808

PATIENT
  Age: 36 Year
  Sex: Male

DRUGS (3)
  1. RISPERDAL [Suspect]
     Indication: SCHIZOPHRENIA
     Dosage: 2 MG, ORAL
     Route: 048
     Dates: start: 20040308, end: 20040319
  2. VALPROATE SODIUM [Suspect]
     Indication: EPILEPSY
     Dosage: 1500 MG, ORAL
     Route: 048
     Dates: start: 20010301, end: 20040319
  3. CITALOPRAM [Concomitant]

REACTIONS (2)
  - CONFUSIONAL STATE [None]
  - PANCYTOPENIA [None]
